FAERS Safety Report 17967699 (Version 1)
Quarter: 2020Q2

REPORT INFORMATION
  Report Type: Spontaneous
  Country: US (occurrence: US)
  Receive Date: 20200630
  Receipt Date: 20200630
  Transmission Date: 20200714
  Serious: Yes (Hospitalization)
  Sender: FDA-Public Use
  Company Number: None

PATIENT
  Age: 28 Year
  Sex: Male

DRUGS (9)
  1. TRIMETHOBENZ [Concomitant]
  2. ONDANSETRON [Concomitant]
     Active Substance: ONDANSETRON
  3. CALCITROL [Concomitant]
  4. CEFDINIR. [Concomitant]
     Active Substance: CEFDINIR
  5. HYDROXYZ PAM [Concomitant]
     Active Substance: HYDROXYZINE PAMOATE
  6. AMOK/K CLAV [Concomitant]
  7. PROMACTA [Suspect]
     Active Substance: ELTROMBOPAG OLAMINE
     Indication: PRODUCT USED FOR UNKNOWN INDICATION
     Route: 048
     Dates: start: 20200323
  8. VANCOMYCIN [Concomitant]
     Active Substance: VANCOMYCIN
  9. SEVELAMER [Concomitant]
     Active Substance: SEVELAMER

REACTIONS (1)
  - Renal cancer [None]

NARRATIVE: CASE EVENT DATE: 20200601
